FAERS Safety Report 7091619-0 (Version None)
Quarter: 2010Q4

REPORT INFORMATION
  Report Type: 
  Country: None (occurrence: None)
  Receive Date: 20101101
  Receipt Date: 20101027
  Transmission Date: 20110411
  Serious: Yes (Death)
  Sender: FDA-Public Use
  Company Number: 2010-0007

PATIENT
  Sex: Male

DRUGS (7)
  1. HALOPERIDOL [Suspect]
  2. THORAZINE [Concomitant]
  3. GEODON [Concomitant]
  4. SEROQUEL [Concomitant]
  5. ZYPREXA [Concomitant]
  6. RISPERDAL [Concomitant]
  7. COGENTIN [Concomitant]

REACTIONS (9)
  - COMA [None]
  - HYPOTHERMIA [None]
  - HYPOXIC-ISCHAEMIC ENCEPHALOPATHY [None]
  - INCORRECT DOSE ADMINISTERED [None]
  - INTESTINAL GANGRENE [None]
  - INTESTINAL OBSTRUCTION [None]
  - INTESTINAL PERFORATION [None]
  - PROCEDURAL COMPLICATION [None]
  - SEPTIC SHOCK [None]
